FAERS Safety Report 8233863-2 (Version None)
Quarter: 2012Q1

REPORT INFORMATION
  Report Type: 
  Country: None (occurrence: None)
  Receive Date: 20120326
  Receipt Date: 20120314
  Transmission Date: 20120608
  Serious: Yes (Other)
  Sender: FDA-Public Use
  Company Number: DE-ELI_LILLY_AND_COMPANY-DE201203004156

PATIENT
  Sex: Female

DRUGS (10)
  1. FORTEO [Suspect]
     Indication: OSTEOPOROSIS
     Dosage: UNK, QD
     Route: 058
     Dates: start: 20100928
  2. MAGNESIUM [Concomitant]
  3. LEVOTHYROXINE SODIUM [Concomitant]
  4. VITAMIN D [Concomitant]
  5. O2 [Concomitant]
  6. LOPERAMIDE [Concomitant]
  7. CORTISONE ACETATE [Concomitant]
     Dosage: 20 MG, UNK
     Dates: start: 20040101
  8. NITROLINGUAL [Concomitant]
  9. LORZAAR [Concomitant]
  10. AZATHIOPRINE [Concomitant]

REACTIONS (3)
  - MUSCULOSKELETAL PAIN [None]
  - ANEURYSM [None]
  - NASOPHARYNGITIS [None]
